FAERS Safety Report 6498354-8 (Version None)
Quarter: 2009Q4

REPORT INFORMATION
  Report Type: 
  Country: None (occurrence: None)
  Receive Date: 20091125
  Receipt Date: 20090630
  Transmission Date: 20100525
  Serious: Yes (Other)
  Sender: FDA-Public Use
  Company Number: 2009BH010808

PATIENT
  Age: 84 Year
  Sex: Male

DRUGS (2)
  1. DIANEAL [Suspect]
     Indication: PERITONEAL DIALYSIS
     Dosage: 8 L ; EVERY DAY ; IP
     Route: 033
     Dates: end: 20090625
  2. DIANEAL [Suspect]
     Indication: PERITONEAL DIALYSIS
     Dosage: 8 L ; EVERY DAY ; IP
     Route: 033

REACTIONS (3)
  - DEVICE RELATED INFECTION [None]
  - PERITONEAL DIALYSIS COMPLICATION [None]
  - PERITONITIS BACTERIAL [None]
